FAERS Safety Report 5868586-8 (Version None)
Quarter: 2008Q3

REPORT INFORMATION
  Report Type: 
  Country: None (occurrence: None)
  Receive Date: 20080902
  Receipt Date: 20080902
  Transmission Date: 20090109
  Serious: No
  Sender: FDA-Public Use
  Company Number: None

PATIENT

DRUGS (1)
  1. CYMBALTA [Suspect]

REACTIONS (16)
  - ACCIDENT [None]
  - AGGRESSION [None]
  - ANXIETY [None]
  - CONSTIPATION [None]
  - CRYING [None]
  - DISTURBANCE IN ATTENTION [None]
  - DIZZINESS [None]
  - DRY MOUTH [None]
  - HALLUCINATION [None]
  - HEART RATE INCREASED [None]
  - HYPERHIDROSIS [None]
  - INSOMNIA [None]
  - NAUSEA [None]
  - THINKING ABNORMAL [None]
  - TINNITUS [None]
  - VOMITING [None]
